FAERS Safety Report 6961681-1 (Version None)
Quarter: 2010Q3

REPORT INFORMATION
  Report Type: 
  Country: None (occurrence: None)
  Receive Date: 20100901
  Receipt Date: 20100824
  Transmission Date: 20110219
  Serious: Yes (Other)
  Sender: FDA-Public Use
  Company Number: US-AMGEN-QUU433747

PATIENT
  Sex: Female

DRUGS (1)
  1. ENBREL [Suspect]
     Indication: RHEUMATOID ARTHRITIS
     Route: 058

REACTIONS (7)
  - BACTERIAL INFECTION [None]
  - FATIGUE [None]
  - HAEMATEMESIS [None]
  - LARYNGITIS [None]
  - NAUSEA [None]
  - RHEUMATOID ARTHRITIS [None]
  - SYNCOPE [None]
